FAERS Safety Report 15474623 (Version 1)
Quarter: 2018Q4

REPORT INFORMATION
  Report Type: Spontaneous
  Country: DK (occurrence: DK)
  Receive Date: 20181008
  Receipt Date: 20181008
  Transmission Date: 20190205
  Serious: Yes (Death, Other)
  Sender: FDA-Public Use
  Company Number: DK-CASPER PHARMA LLC-2018CAS000167

PATIENT
  Age: 49 Year
  Sex: Male

DRUGS (2)
  1. AZATHIOPRINE. [Suspect]
     Active Substance: AZATHIOPRINE
     Indication: GLOMERULONEPHRITIS CHRONIC
     Dosage: 300 MILLIGRAM, QD
     Route: 048
     Dates: start: 19680614, end: 19680701
  2. AZATHIOPRINE. [Suspect]
     Active Substance: AZATHIOPRINE
     Dosage: 100 MILLIGRAM, QD
     Route: 048
     Dates: start: 19680909

REACTIONS (7)
  - Myopathy toxic [Unknown]
  - Nausea [Unknown]
  - Acute kidney injury [Fatal]
  - Rash [Unknown]
  - Product use in unapproved indication [Unknown]
  - Vomiting [Unknown]
  - Diarrhoea [Unknown]
